FAERS Safety Report 7056666-3 (Version None)
Quarter: 2010Q4

REPORT INFORMATION
  Report Type: 
  Country: None (occurrence: None)
  Receive Date: 20101019
  Receipt Date: 20101005
  Transmission Date: 20110411
  Serious: Yes (Other)
  Sender: FDA-Public Use
  Company Number: DSJ-2010-12103

PATIENT
  Age: 42 Year
  Sex: Female

DRUGS (10)
  1. AMLODIPINE BESYLATE AND OLMESARTAN MEDOXOMIL [Suspect]
     Indication: HYPERTENSION
     Dosage: 40/5 MG (1 IN 1 D), PER ORAL 40/10 MG (1 IN 1 D), PER ORAL
     Route: 048
     Dates: start: 20100101, end: 20100701
  2. AMLODIPINE BESYLATE AND OLMESARTAN MEDOXOMIL [Suspect]
     Indication: HYPERTENSION
     Dosage: 40/5 MG (1 IN 1 D), PER ORAL 40/10 MG (1 IN 1 D), PER ORAL
     Route: 048
     Dates: start: 20100701
  3. FLUOXETINE [Concomitant]
  4. CLONAZEPAM [Concomitant]
  5. GLUCOSAMINE SULFATE/CHONDROITIN SULFATE GLUCOSAMINE CHONDROITIN SULFAT [Concomitant]
  6. ETODOLAC (ETODOLAC) (ETODOLAC) [Concomitant]
  7. DICLOFENAC POTASSIUM (DICLOFENAC POTASSIUM) (DICLOFENAC POTASSIUM) [Concomitant]
  8. MIRTAZAPINE [Concomitant]
  9. OMEGA 3 (EICODAPENTAENOIC ACID, DOCOSAHEXANOIC ACID) [Concomitant]
  10. HOMEOPATHIC MEDICINE (NAME NOT SPECIFIED) (HOMEOPATIC PREPARATION) [Concomitant]

REACTIONS (4)
  - DRUG INEFFECTIVE [None]
  - HEADACHE [None]
  - NAUSEA [None]
  - SUICIDE ATTEMPT [None]
